FAERS Safety Report 12362434 (Version 1)
Quarter: 2016Q2

REPORT INFORMATION
  Report Type: Spontaneous
  Country: US (occurrence: US)
  Receive Date: 20160512
  Receipt Date: 20160512
  Transmission Date: 20160815
  Serious: Yes (Life-Threatening, Other)
  Sender: FDA-Public Use
  Company Number: US-WATSON-2016-08647

PATIENT
  Age: 56 Year
  Sex: Male

DRUGS (7)
  1. CLOZAPINE (UNKNOWN) [Suspect]
     Active Substance: CLOZAPINE
     Dosage: 25 MG, BID (DAY 2)
     Route: 065
  2. DIVALPROEX SODIUM. [Concomitant]
     Active Substance: DIVALPROEX SODIUM
     Indication: SCHIZOPHRENIA
     Dosage: 1000 MG, QHS
     Route: 065
     Dates: start: 201403
  3. CLOZAPINE (UNKNOWN) [Suspect]
     Active Substance: CLOZAPINE
     Dosage: 37.5 MG, BID (DAY 3)
     Route: 065
  4. ARIPIPRAZOLE. [Concomitant]
     Active Substance: ARIPIPRAZOLE
     Indication: SCHIZOPHRENIA
     Dosage: 20 MG, BID
     Route: 065
     Dates: start: 201403
  5. CLOZAPINE (UNKNOWN) [Suspect]
     Active Substance: CLOZAPINE
     Indication: SCHIZOPHRENIA
     Dosage: 12.5 MG, BID (DAY 1)
     Route: 065
  6. CLOZAPINE (UNKNOWN) [Suspect]
     Active Substance: CLOZAPINE
     Dosage: 50 MG, BID (DAYS 4-7)
     Route: 065
  7. PERPHENAZINE. [Concomitant]
     Active Substance: PERPHENAZINE
     Indication: SCHIZOPHRENIA
     Dosage: 20 MG, DAILY
     Route: 065
     Dates: start: 201403

REACTIONS (3)
  - Dysphagia [Not Recovered/Not Resolved]
  - Pneumonia aspiration [Recovered/Resolved]
  - Drooling [Unknown]
